FAERS Safety Report 24395219 (Version 1)
Quarter: 2024Q4

REPORT INFORMATION
  Report Type: Spontaneous
  Country: US (occurrence: US)
  Receive Date: 20241004
  Receipt Date: 20241004
  Transmission Date: 20250115
  Serious: No
  Sender: MERCK
  Company Number: US-009507513-2409USA004101

PATIENT
  Sex: Male

DRUGS (11)
  1. KEYTRUDA [Suspect]
     Active Substance: PEMBROLIZUMAB
     Indication: Neoplasm malignant
     Dosage: UNK
     Route: 065
  2. DUPIXENT [Suspect]
     Active Substance: DUPILUMAB
     Indication: Dermatitis atopic
     Dosage: STRENGTH: 300MG/2ML, AT UNKNOWN LOADING DOSE, ONCE
     Route: 058
  3. DUPIXENT [Suspect]
     Active Substance: DUPILUMAB
     Dosage: 300 MILLIGRAM, QW(MAINTENANCE)
     Route: 058
  4. MYRBETRIQ [Concomitant]
     Active Substance: MIRABEGRON
  5. ELIQUIS [Concomitant]
     Active Substance: APIXABAN
  6. FINASTERIDE [Concomitant]
     Active Substance: FINASTERIDE
  7. FLUCONAZOLE [Concomitant]
     Active Substance: FLUCONAZOLE
  8. MEGESTROL ACETATE [Concomitant]
     Active Substance: MEGESTROL ACETATE
  9. ONDANSETRON [Concomitant]
     Active Substance: ONDANSETRON
  10. DULCOLAX (BISACODYL) [Concomitant]
     Active Substance: BISACODYL
  11. TYLENOL [Concomitant]
     Active Substance: ACETAMINOPHEN

REACTIONS (2)
  - Eczema [Unknown]
  - Pruritus [Unknown]
